FAERS Safety Report 19906877 (Version 1)
Quarter: 2021Q3

REPORT INFORMATION
  Report Type: Spontaneous
  Country: US (occurrence: US)
  Receive Date: 20210930
  Receipt Date: 20210930
  Transmission Date: 20211014
  Serious: Yes (Hospitalization)
  Sender: FDA-Public Use
  Company Number: None

PATIENT
  Age: 50 Year
  Sex: Female

DRUGS (1)
  1. COPAXONE [Suspect]
     Active Substance: GLATIRAMER ACETATE
     Dosage: OTHER FREQUENCY:OTHER;?
     Route: 058
     Dates: start: 201812

REACTIONS (5)
  - Multiple sclerosis relapse [None]
  - Fatigue [None]
  - Dysphagia [None]
  - Vision blurred [None]
  - Hypoaesthesia [None]

NARRATIVE: CASE EVENT DATE: 20210917
